FAERS Safety Report 5634937-2 (Version None)
Quarter: 2008Q1

REPORT INFORMATION
  Report Type: 
  Country: None (occurrence: None)
  Receive Date: 20080221
  Receipt Date: 20080221
  Transmission Date: 20080703
  Serious: Yes (Life-Threatening)
  Sender: FDA-Public Use
  Company Number: None

PATIENT
  Age: 26 Year
  Sex: Female
  Weight: 61.2356 kg

DRUGS (1)
  1. CHANTIX [Suspect]
     Indication: SMOKING CESSATION THERAPY
     Dosage: 1 MG TWICE DAILY PO
     Route: 048
     Dates: start: 20080108, end: 20080220

REACTIONS (13)
  - ABNORMAL BEHAVIOUR [None]
  - AGGRESSION [None]
  - APATHY [None]
  - CRYING [None]
  - DEPRESSION [None]
  - DISSOCIATION [None]
  - IRRITABILITY [None]
  - MANIA [None]
  - MOOD ALTERED [None]
  - MOOD SWINGS [None]
  - NERVOUS SYSTEM DISORDER [None]
  - PERSONALITY CHANGE [None]
  - SUICIDAL IDEATION [None]
